FAERS Safety Report 22182423 (Version 2)
Quarter: 2023Q2

REPORT INFORMATION
  Report Type: Spontaneous
  Country: US (occurrence: US)
  Receive Date: 20230406
  Receipt Date: 20230420
  Transmission Date: 20230722
  Serious: Yes (Other)
  Sender: FDA-Public Use
  Company Number: US-TEVA-2023-US-2872794

PATIENT
  Age: 42 Year
  Sex: Male

DRUGS (12)
  1. PREDNISONE [Suspect]
     Active Substance: PREDNISONE
     Indication: T-cell lymphoma
     Dosage: 40 MILLIGRAM DAILY; ONCE A DAY , FOR 4 WEEK
     Route: 065
  2. PREDNISONE [Suspect]
     Active Substance: PREDNISONE
     Indication: Panniculitis
     Dosage: 10 MG/WEEK
     Route: 065
  3. HYDROXYCHLOROQUINE [Suspect]
     Active Substance: HYDROXYCHLOROQUINE
     Indication: T-cell lymphoma
     Dosage: 400 MILLIGRAM DAILY; 200MG TWICE DAILY
     Route: 065
  4. HYDROXYCHLOROQUINE [Suspect]
     Active Substance: HYDROXYCHLOROQUINE
     Indication: Panniculitis
  5. CYCLOSPORINE [Suspect]
     Active Substance: CYCLOSPORINE
     Indication: T-cell lymphoma
     Dosage: 200 MILLIGRAM DAILY; 100MG TWICE DAILY
     Route: 065
  6. CYCLOSPORINE [Suspect]
     Active Substance: CYCLOSPORINE
     Indication: Panniculitis
     Dosage: 300 MILLIGRAM DAILY; 150MG TWICE DAILY
     Route: 065
  7. TRIAMCINOLONE ACETONIDE [Suspect]
     Active Substance: TRIAMCINOLONE ACETONIDE
     Indication: T-cell lymphoma
     Route: 026
  8. TRIAMCINOLONE ACETONIDE [Suspect]
     Active Substance: TRIAMCINOLONE ACETONIDE
     Indication: Panniculitis
  9. METHOTREXATE [Suspect]
     Active Substance: METHOTREXATE
     Indication: T-cell lymphoma
     Dosage: 7.5 MG/WEEK
     Route: 065
  10. METHOTREXATE [Suspect]
     Active Substance: METHOTREXATE
     Indication: Panniculitis
     Dosage: 25 MG/WEEK
     Route: 065
  11. ROMIDEPSIN [Suspect]
     Active Substance: ROMIDEPSIN
     Indication: T-cell lymphoma
     Dosage: 14 MG/WEEK  DOSAGE: 14MG/WEEK WAS STARTED WITH THREE CONSECUTIVE WEEKS OF TREATMENT FOLLOWED BY ONE
     Route: 065
  12. ROMIDEPSIN [Suspect]
     Active Substance: ROMIDEPSIN
     Indication: Panniculitis

REACTIONS (5)
  - Cytopenia [Recovering/Resolving]
  - Drug ineffective [Unknown]
  - Decreased appetite [Recovering/Resolving]
  - Vomiting [Recovering/Resolving]
  - Nausea [Recovering/Resolving]
